FAERS Safety Report 5493320-3 (Version None)
Quarter: 2007Q4

REPORT INFORMATION
  Report Type: 
  Country: None (occurrence: None)
  Receive Date: 20071023
  Receipt Date: 20070326
  Transmission Date: 20080405
  Serious: No
  Sender: FDA-Public Use
  Company Number: US-BRISTOL-MYERS SQUIBB COMPANY-13726989

PATIENT
  Age: 45 Year
  Sex: Female
  Weight: 102 kg

DRUGS (8)
  1. KENALOG-40 [Suspect]
     Indication: BACK PAIN
     Dosage: KENALOG-40 INJ: ON 14-SEP-2006; 05-OCT-2006; 07-NOV-2006; AND 15-FEB-2007
     Dates: start: 20060914
  2. KENALOG-40 [Suspect]
     Indication: EPIDURAL ANAESTHESIA
     Dosage: KENALOG-40 INJ: ON 14-SEP-2006; 05-OCT-2006; 07-NOV-2006; AND 15-FEB-2007
     Dates: start: 20060914
  3. CYMBALTA [Concomitant]
  4. SYNTHROID [Concomitant]
  5. CELEBREX [Concomitant]
  6. HYDROCODONE [Concomitant]
  7. LYRICA [Concomitant]
  8. FLEXERIL [Concomitant]

REACTIONS (2)
  - HEADACHE [None]
  - MENORRHAGIA [None]
